FAERS Safety Report 6084375-6 (Version None)
Quarter: 2009Q1

REPORT INFORMATION
  Report Type: 
  Country: None (occurrence: None)
  Receive Date: 20090219
  Receipt Date: 20090212
  Transmission Date: 20090719
  Serious: Yes (Disabling)
  Sender: FDA-Public Use
  Company Number: A0768233A

PATIENT
  Sex: Female

DRUGS (8)
  1. LAMICTAL [Suspect]
     Indication: DRUG USE FOR UNKNOWN INDICATION
     Dates: end: 20080401
  2. PAXIL [Suspect]
     Indication: DEPRESSION
     Dosage: 10MG PER DAY
     Route: 048
     Dates: end: 20080801
  3. WELLBUTRIN XL [Suspect]
     Indication: DEPRESSION
     Dosage: 300MG PER DAY
     Route: 048
     Dates: end: 20081001
  4. PAXIL [Suspect]
     Route: 065
     Dates: start: 20080801
  5. TOPROL-XL [Concomitant]
  6. COZAAR [Concomitant]
  7. PREVACID [Concomitant]
  8. TRICOR [Concomitant]

REACTIONS (6)
  - AMNESIA [None]
  - ANOSMIA [None]
  - DYSGEUSIA [None]
  - GASTRIC DISORDER [None]
  - GASTRITIS [None]
  - VISION BLURRED [None]
